FAERS Safety Report 14943897 (Version 1)
Quarter: 2018Q2

REPORT INFORMATION
  Report Type: Spontaneous
  Country: US (occurrence: US)
  Receive Date: 20180528
  Receipt Date: 20180528
  Transmission Date: 20180711
  Serious: No
  Sender: FDA-Public Use
  Company Number: US-TEVA-2018-US-897407

PATIENT
  Sex: Male

DRUGS (1)
  1. ALLOPURINOL. [Suspect]
     Active Substance: ALLOPURINOL
     Indication: SINGLE FUNCTIONAL KIDNEY
     Route: 065
     Dates: end: 20180212

REACTIONS (3)
  - Asthenia [Unknown]
  - Muscle injury [Unknown]
  - Muscle spasms [Unknown]
